FAERS Safety Report 9886622 (Version 1)
Quarter: 2014Q1

REPORT INFORMATION
  Report Type: Spontaneous
  Country: FR (occurrence: FR)
  Receive Date: 20140210
  Receipt Date: 20140210
  Transmission Date: 20141002
  Serious: Yes (Death, Life-Threatening)
  Sender: FDA-Public Use
  Company Number: FR-GE HEALTHCARE MEDICAL DIAGNOSTICS-OMPQ-PR-1401S-0085

PATIENT
  Age: 88 Year
  Sex: Male

DRUGS (4)
  1. OMNIPAQUE [Suspect]
     Indication: MASS
     Dosage: DOSE NOT REPORTED
     Route: 042
     Dates: start: 20131206, end: 20131206
  2. OMNIPAQUE [Suspect]
     Indication: INVESTIGATION
  3. OMNIPAQUE [Suspect]
     Indication: THROMBOANGIITIS OBLITERANS
  4. OMNIPAQUE [Suspect]
     Indication: DIAGNOSTIC PROCEDURE

REACTIONS (2)
  - Renal tubular necrosis [Fatal]
  - Renal tubular disorder [Fatal]
